FAERS Safety Report 7402865-8 (Version None)
Quarter: 2011Q2

REPORT INFORMATION
  Report Type: 
  Country: None (occurrence: None)
  Receive Date: 20110408
  Receipt Date: 20110330
  Transmission Date: 20111010
  Serious: Yes (Other)
  Sender: FDA-Public Use
  Company Number: US-AMGEN-USASP2011017139

PATIENT
  Age: 52 Year
  Sex: Female

DRUGS (3)
  1. ENBREL [Suspect]
     Indication: RHEUMATOID ARTHRITIS
     Dosage: 50 MG, QWK
     Dates: start: 20050602
  2. VACCINES [Concomitant]
  3. INFLUENZA VACCINE [Concomitant]

REACTIONS (7)
  - UPPER RESPIRATORY TRACT INFECTION [None]
  - BEDRIDDEN [None]
  - ARTHRITIS [None]
  - MALAISE [None]
  - KIDNEY INFECTION [None]
  - PYREXIA [None]
  - FUNGAL INFECTION [None]
